FAERS Safety Report 24190695 (Version 1)
Quarter: 2024Q3

REPORT INFORMATION
  Report Type: Report from Study
  Country: CA (occurrence: CA)
  Receive Date: 20240808
  Receipt Date: 20240808
  Transmission Date: 20241017
  Serious: Yes (Life-Threatening, Other)
  Sender: NOVARTIS
  Company Number: CA-002147023-NVSC2024CA122124

PATIENT
  Age: 79 Year
  Sex: Female

DRUGS (2)
  1. KISQALI [Suspect]
     Active Substance: RIBOCICLIB
     Indication: Breast cancer metastatic
     Dosage: 600 MG, QD
     Route: 065
  2. KISQALI [Suspect]
     Active Substance: RIBOCICLIB
     Dosage: 200 MG, QD
     Route: 048
     Dates: start: 20240501, end: 20240611

REACTIONS (11)
  - Feeling abnormal [Unknown]
  - Pelvic fracture [Unknown]
  - Cardiac dysfunction [Unknown]
  - Blood creatine increased [Recovered/Resolved]
  - Nausea [Unknown]
  - Vomiting [Unknown]
  - Blood creatine increased [Recovered/Resolved]
  - Hepatic enzyme increased [Unknown]
  - Illness [Unknown]
  - Skin discolouration [Unknown]
  - Off label use [Unknown]
